FAERS Safety Report 7732805-3 (Version None)
Quarter: 2011Q3

REPORT INFORMATION
  Report Type: 
  Country: None (occurrence: None)
  Receive Date: 20110902
  Receipt Date: 20110902
  Transmission Date: 20111222
  Serious: Yes (Life-Threatening)
  Sender: FDA-Public Use
  Company Number: None

PATIENT
  Sex: Male
  Weight: 86.1834 kg

DRUGS (2)
  1. BUPROPION HCL [Suspect]
     Indication: DEPRESSION
     Dosage: 450 MG 1 PER DAY ORAL
     Route: 048
     Dates: start: 20110716
  2. BUPROPION HCL [Suspect]
     Indication: DEPRESSION
     Dosage: 450 MG 1 PER DAY ORAL
     Route: 048
     Dates: start: 20110715

REACTIONS (8)
  - MALE SEXUAL DYSFUNCTION [None]
  - HEPATIC PAIN [None]
  - FLANK PAIN [None]
  - PENILE PAIN [None]
  - PAINFUL ERECTION [None]
  - TEARFULNESS [None]
  - HEPATOMEGALY [None]
  - HEPATITIS [None]
